FAERS Safety Report 9215129 (Version 2)
Quarter: 2013Q2

REPORT INFORMATION
  Report Type: Spontaneous
  Country: BR (occurrence: BR)
  Receive Date: 20130405
  Receipt Date: 20130508
  Transmission Date: 20140414
  Serious: No
  Sender: FDA-Public Use
  Company Number: PHHY2013BR032766

PATIENT
  Age: 6 Year
  Sex: Male
  Weight: 60 kg

DRUGS (2)
  1. RITALINA [Suspect]
     Indication: ATTENTION DEFICIT/HYPERACTIVITY DISORDER
     Dosage: 2 DF, BID
     Route: 048
     Dates: end: 20130324
  2. DEPAKENE//VALPROIC ACID [Concomitant]
     Indication: BIPOLAR DISORDER
     Dosage: 2 DF, DAILY
     Route: 048

REACTIONS (3)
  - Aggression [Not Recovered/Not Resolved]
  - Anxiety [Not Recovered/Not Resolved]
  - Agitation [Not Recovered/Not Resolved]
